FAERS Safety Report 21297187 (Version 1)
Quarter: 2022Q3

REPORT INFORMATION
  Report Type: Spontaneous
  Country: US (occurrence: US)
  Receive Date: 20220906
  Receipt Date: 20220906
  Transmission Date: 20221027
  Serious: Yes (Hospitalization)
  Sender: FDA-Public Use
  Company Number: US-MYLANLABS-2022M1090191

PATIENT
  Age: 38 Year
  Sex: Female

DRUGS (5)
  1. TIZANIDINE [Suspect]
     Active Substance: TIZANIDINE
     Indication: Muscle relaxant therapy
     Dosage: UNK, SHE TOOK 5 TABLETS EACH HYDROMORPHONE AND TIZANIDINE
     Route: 065
  2. NALOXONE [Suspect]
     Active Substance: NALOXONE
     Indication: Product used for unknown indication
     Dosage: UNK
     Route: 065
  3. HYDROMORPHONE [Suspect]
     Active Substance: HYDROMORPHONE
     Indication: Back pain
     Dosage: UNK, SHE TOOK 5 TABLETS EACH HYDROMORPHONE AND TIZANIDINE
     Route: 065
  4. AMLODIPINE [Concomitant]
     Active Substance: AMLODIPINE BESYLATE
     Indication: Hypertension
     Dosage: UNK
     Route: 065
  5. HYDRALAZINE [Concomitant]
     Active Substance: HYDRALAZINE HYDROCHLORIDE
     Indication: Hypertension
     Dosage: UNK, PRN, AS-NEEDED
     Route: 065

REACTIONS (4)
  - Hypotension [Recovering/Resolving]
  - Overdose [Recovering/Resolving]
  - Intentional product misuse [Recovering/Resolving]
  - Drug ineffective [Unknown]
